FAERS Safety Report 8416263-1 (Version None)
Quarter: 2012Q2

REPORT INFORMATION
  Report Type: 
  Country: None (occurrence: None)
  Receive Date: 20120606
  Receipt Date: 20120525
  Transmission Date: 20120825
  Serious: Yes (Hospitalization)
  Sender: FDA-Public Use
  Company Number: DE-ELI_LILLY_AND_COMPANY-DE201203000968

PATIENT
  Sex: Female

DRUGS (10)
  1. ZYPREXA [Suspect]
     Dosage: 10 MG, QD
     Route: 048
  2. ZYPREXA [Suspect]
     Dosage: 15 MG, QD
     Route: 048
  3. ZYPREXA [Suspect]
     Dosage: 20 MG, UNK
     Dates: start: 20120313
  4. TEMAZEPAM [Concomitant]
     Dosage: UNK, UNKNOWN
  5. LEVOTHYROXINE SODIUM [Concomitant]
     Dosage: UNK, UNKNOWN
  6. ZYPREXA [Suspect]
     Dosage: 20 MG, UNK
     Route: 048
     Dates: start: 20060101
  7. ZYPREXA [Suspect]
     Dosage: 20 MG, QD
     Dates: start: 20120103
  8. OLANZAPINE [Suspect]
     Indication: SCHIZOPHRENIA
     Dosage: 300 MG, EVERY TWO WEEKS
     Dates: start: 20120203
  9. ZYPREXA [Suspect]
     Dosage: 5 MG, BID
     Route: 048
     Dates: start: 20120302
  10. ZYPREXA [Suspect]
     Dosage: 15 MG, UNK
     Dates: start: 20120312, end: 20120312

REACTIONS (7)
  - PSYCHOTIC DISORDER [None]
  - SUICIDAL IDEATION [None]
  - HALLUCINATION [None]
  - ABDOMINAL DISCOMFORT [None]
  - DRUG LEVEL DECREASED [None]
  - HOSPITALISATION [None]
  - DRUG INEFFECTIVE [None]
